FAERS Safety Report 8847900 (Version 1)
Quarter: 2012Q4

REPORT INFORMATION
  Report Type: 
  Country: US (occurrence: US)
  Receive Date: 20121018
  Receipt Date: 20121018
  Transmission Date: 20130627
  Serious: Yes (Hospitalization)
  Sender: FDA-Public Use
  Company Number: US-ROCHE-GNE005440

PATIENT
  Age: 16 Year
  Sex: Male

DRUGS (1)
  1. PROTROPIN [Suspect]
     Indication: GROWTH HORMONE DEFICIENCY
     Route: 058
     Dates: start: 19900924, end: 19910810

REACTIONS (5)
  - Guillain-Barre syndrome [Unknown]
  - Musculoskeletal stiffness [Unknown]
  - Muscular weakness [Unknown]
  - Coordination abnormal [Unknown]
  - Clostridium difficile colitis [Unknown]
